FAERS Safety Report 6177860-X (Version None)
Quarter: 2009Q2

REPORT INFORMATION
  Report Type: 
  Country: None (occurrence: None)
  Receive Date: 20090504
  Receipt Date: 20090430
  Transmission Date: 20091009
  Serious: Yes (Death, Life-Threatening, Hospitalization, Other)
  Sender: FDA-Public Use
  Company Number: NZ-ROXANE LABORATORIES, INC.-2009-RO-00425RO

PATIENT
  Sex: Male

DRUGS (7)
  1. PROPRANOLOL [Suspect]
     Indication: SINUS TACHYCARDIA
  2. PROPRANOLOL [Suspect]
     Route: 042
  3. CARBIMAZOLE [Suspect]
     Indication: SINUS TACHYCARDIA
  4. CARBIMAZOLE [Suspect]
  5. RADIOIODINE [Suspect]
  6. ANTIBIOTICS [Suspect]
  7. HYRDROCORTISONE [Suspect]
     Route: 042

REACTIONS (9)
  - ASCITES [None]
  - ASPARTATE AMINOTRANSFERASE INCREASED [None]
  - ATRIAL FIBRILLATION [None]
  - BLOOD BILIRUBIN INCREASED [None]
  - CARDIAC FAILURE [None]
  - CARDIOMYOPATHY [None]
  - ELECTROMECHANICAL DISSOCIATION [None]
  - HYPERTHYROIDISM [None]
  - PNEUMONIA [None]
